FAERS Safety Report 8774389 (Version 2)
Quarter: 2013Q4

REPORT INFORMATION
  Report Type: Spontaneous
  Country: US (occurrence: US)
  Receive Date: 20120907
  Receipt Date: 20131101
  Transmission Date: 20140711
  Serious: No
  Sender: FDA-Public Use
  Company Number: US-009507513-1209USA001253

PATIENT
  Sex: Male

DRUGS (4)
  1. REBETOL [Suspect]
     Indication: HEPATITIS C
     Dosage: UNK
     Dates: start: 20070101, end: 20080101
  2. REBETOL [Suspect]
     Dosage: UNK
     Dates: start: 20120728
  3. PEGASYS [Concomitant]
     Indication: HEPATITIS C
     Dosage: UNK
     Dates: start: 20070101, end: 20080101
  4. PEGASYS [Concomitant]
     Dosage: UNK
     Dates: start: 20120728

REACTIONS (2)
  - Injection site pain [Unknown]
  - Drug ineffective [Unknown]
